FAERS Safety Report 18301770 (Version 1)
Quarter: 2020Q3

REPORT INFORMATION
  Report Type: Spontaneous
  Country: GB (occurrence: GB)
  Receive Date: 20200923
  Receipt Date: 20200923
  Transmission Date: 20201103
  Serious: Yes (Other)
  Sender: FDA-Public Use
  Company Number: GB-AMGEN-GBRSP2020151161

PATIENT
  Age: 35 Year
  Sex: Female

DRUGS (19)
  1. ROMIPLOSTIM [Suspect]
     Active Substance: ROMIPLOSTIM
     Indication: AUTOIMMUNE PANCYTOPENIA
     Dosage: 10 MICROGRAM/KILOGRAM, QWK
     Route: 065
  2. RITUXIMAB. [Concomitant]
     Active Substance: RITUXIMAB
     Dosage: 375 MILLIGRAM/KILOGRAM, QWK
  3. CICLOSPORIN [Concomitant]
     Active Substance: CYCLOSPORINE
  4. ACYCLOVIR [ACICLOVIR] [Concomitant]
     Active Substance: ACYCLOVIR
  5. ALFACALCIDOL [Concomitant]
     Active Substance: ALFACALCIDOL
  6. FOLIC ACID. [Concomitant]
     Active Substance: FOLIC ACID
  7. MYCOPHENOLATE MOFETIL. [Concomitant]
     Active Substance: MYCOPHENOLATE MOFETIL
     Dosage: 500 MILLIGRAM, BID
  8. RIFAXIMIN. [Concomitant]
     Active Substance: RIFAXIMIN
     Indication: OVERGROWTH BACTERIAL
  9. RED BLOOD CELLS [Concomitant]
     Active Substance: HUMAN RED BLOOD CELL
  10. PENTAMIDINE [Concomitant]
     Active Substance: PENTAMIDINE
  11. ASPIRIN [ACETYLSALICYLIC ACID] [Concomitant]
     Active Substance: ASPIRIN
  12. PREDNISOLONE. [Concomitant]
     Active Substance: PREDNISOLONE
     Dosage: 1 MILLIGRAM/KILOGRAM
  13. RANITIDINE. [Concomitant]
     Active Substance: RANITIDINE
  14. PLATELETS [Concomitant]
     Active Substance: HUMAN PLATELET, ALLOGENIC
     Indication: PROPHYLAXIS
  15. IMMUNOGLOBULIN I.V [Concomitant]
     Active Substance: HUMAN IMMUNOGLOBULIN G
     Dosage: 1 GRAM PER KILOGRAM
  16. TACROLIMUS. [Concomitant]
     Active Substance: TACROLIMUS
  17. POSACONAZOLE [Concomitant]
     Active Substance: POSACONAZOLE
  18. FILGRASTIM [Suspect]
     Active Substance: FILGRASTIM
     Indication: NEUTROPENIA
     Dosage: 300 MICROGRAM/KILOGRAM, QD
     Route: 065
  19. SIMVASTATIN. [Concomitant]
     Active Substance: SIMVASTATIN

REACTIONS (6)
  - Off label use [Unknown]
  - Drug ineffective [Unknown]
  - Thrombophlebitis superficial [Unknown]
  - Aplasia pure red cell [Unknown]
  - Retinal haemorrhage [Unknown]
  - Macular oedema [Unknown]
